FAERS Safety Report 10096563 (Version 2)
Quarter: 2014Q2

REPORT INFORMATION
  Report Type: Spontaneous
  Country: JP (occurrence: JP)
  Receive Date: 20140422
  Receipt Date: 20140512
  Transmission Date: 20141212
  Serious: Yes (Life-Threatening, Hospitalization, Other)
  Sender: FDA-Public Use
  Company Number: JP-UCBSA-118411

PATIENT
  Age: 46 Year
  Sex: Male

DRUGS (6)
  1. E KEPPRA [Suspect]
     Indication: EPILEPSY
     Dosage: UNKNOWN DOSE
     Route: 048
     Dates: start: 20140327, end: 20140331
  2. EPIRENAT [Concomitant]
     Route: 048
     Dates: start: 20130306
  3. TOPINA [Concomitant]
     Route: 048
     Dates: start: 200811
  4. MYSTAN [Concomitant]
     Route: 048
     Dates: start: 200707
  5. CALFINA [Concomitant]
     Route: 048
     Dates: start: 201310
  6. GABAPENTIN [Concomitant]
     Dates: end: 20140331

REACTIONS (4)
  - Granulocytopenia [Recovering/Resolving]
  - Leukopenia [Recovering/Resolving]
  - Pneumocystis jirovecii pneumonia [Recovering/Resolving]
  - Somnolence [Recovered/Resolved]
